FAERS Safety Report 10219417 (Version 2)
Quarter: 2014Q2

REPORT INFORMATION
  Report Type: Report from Study
  Country: US (occurrence: US)
  Receive Date: 20140605
  Receipt Date: 20140626
  Transmission Date: 20141212
  Serious: Yes (Hospitalization)
  Sender: FDA-Public Use
  Company Number: US-JNJFOC-20140519076

PATIENT
  Age: 9 Year
  Sex: Male
  Weight: 30.3 kg

DRUGS (2)
  1. GOLIMUMAB [Suspect]
     Indication: COLITIS ULCERATIVE
     Dosage: AT WEEK 0
     Route: 058
     Dates: start: 20140512, end: 20140512
  2. GOLIMUMAB [Suspect]
     Indication: COLITIS ULCERATIVE
     Dosage: AT WEEK 2
     Route: 058
     Dates: start: 20140527, end: 20140527

REACTIONS (3)
  - Abdominal pain [Recovered/Resolved]
  - Haematochezia [Recovered/Resolved]
  - Gastrooesophageal reflux disease [Recovered/Resolved]
